FAERS Safety Report 25976325 (Version 1)
Quarter: 2025Q4

REPORT INFORMATION
  Report Type: Spontaneous
  Country: IL (occurrence: IL)
  Receive Date: 20251029
  Receipt Date: 20251029
  Transmission Date: 20260117
  Serious: Yes (Life-Threatening)
  Sender: PFIZER
  Company Number: IL-TAKEDA-2025TUS092990

PATIENT
  Age: 59 Year
  Sex: Female

DRUGS (1)
  1. CONTROLOC [Suspect]
     Active Substance: PANTOPRAZOLE SODIUM
     Dosage: 40 MG
     Dates: start: 20250925

REACTIONS (4)
  - Oxygen saturation abnormal [Unknown]
  - Tachypnoea [Unknown]
  - Dyspnoea [Unknown]
  - Tremor [Unknown]
